FAERS Safety Report 6701174-X (Version None)
Quarter: 2010Q2

REPORT INFORMATION
  Report Type: 
  Country: None (occurrence: None)
  Receive Date: 20100428
  Receipt Date: 20100428
  Transmission Date: 20101027
  Serious: Yes (Death)
  Sender: FDA-Public Use
  Company Number: None

PATIENT
  Sex: Male
  Weight: 86.1834 kg

DRUGS (2)
  1. QVAR 40 [Suspect]
     Indication: ASTHMA
     Dosage: 3 PUFFS BID INHAL
     Route: 055
     Dates: start: 20100310, end: 20100407
  2. ADVAIR DISKUS 250/50 [Suspect]
     Indication: ASTHMA
     Dosage: 1 PUFF BID INHAL
     Route: 055
     Dates: start: 20100408, end: 20100413

REACTIONS (2)
  - CHEST DISCOMFORT [None]
  - DYSPNOEA [None]
